FAERS Safety Report 7904127-9 (Version None)
Quarter: 2011Q4

REPORT INFORMATION
  Report Type: 
  Country: None (occurrence: None)
  Receive Date: 20111109
  Receipt Date: 20111031
  Transmission Date: 20120403
  Serious: Yes (Other)
  Sender: FDA-Public Use
  Company Number: US-ASTRAZENECA-2011SE65742

PATIENT
  Age: 80 Year
  Sex: Female
  Weight: 50.3 kg

DRUGS (3)
  1. PULMICORT [Suspect]
     Dosage: GENERIC
     Route: 055
  2. PULMICORT [Suspect]
     Indication: ASTHMA
     Dosage: 0.25 MG 2 ML TWO TIMES A DAY
     Route: 055
  3. ALBUTEROL [Suspect]
     Indication: ASTHMA
     Dosage: 0.83 PERCENT THREE TIMES A DAY
     Route: 055

REACTIONS (3)
  - OFF LABEL USE [None]
  - DRUG ADMINISTERED TO PATIENT OF INAPPROPRIATE AGE [None]
  - ATRIAL FIBRILLATION [None]
